FAERS Safety Report 6515428-3 (Version None)
Quarter: 2009Q4

REPORT INFORMATION
  Report Type: 
  Country: None (occurrence: None)
  Receive Date: 20091223
  Receipt Date: 20091214
  Transmission Date: 20100525
  Serious: Yes (Hospitalization, Other)
  Sender: FDA-Public Use
  Company Number: PHHY2009JP51247

PATIENT
  Sex: Male
  Weight: 104 kg

DRUGS (14)
  1. DIOVAN [Suspect]
     Indication: HYPERTENSION
     Dosage: 40 MG, ONCE DAILY
     Route: 048
     Dates: start: 20080818, end: 20090820
  2. DIOVAN [Suspect]
     Dosage: 80 MG, ONCE DAILY
     Route: 048
     Dates: start: 20090821
  3. AMLODIN [Concomitant]
     Indication: HYPERTENSION
     Dosage: 5 MG
     Route: 048
     Dates: start: 20091031
  4. ACTOS [Concomitant]
     Dosage: 15 MG
     Route: 048
     Dates: start: 20090409
  5. AMARYL [Concomitant]
     Dosage: 2 MG
     Route: 048
     Dates: start: 20080818
  6. NOVOLIN R [Concomitant]
     Indication: BLOOD PRESSURE
     Dosage: UNK
     Route: 058
     Dates: start: 20090403, end: 20090408
  7. SOLU-CORTEF [Concomitant]
     Dosage: 100 MG
     Dates: start: 20090403, end: 20090408
  8. METHYCOBAL [Concomitant]
     Dosage: 500 UG
     Dates: start: 20090403, end: 20090408
  9. NYCLIN [Concomitant]
     Dosage: 100 MG
     Dates: start: 20090403, end: 20090408
  10. SEISHOKU [Concomitant]
     Dosage: 100 MG
     Dates: start: 20090403, end: 20090408
  11. CEFDINIR [Concomitant]
     Dosage: 3 DF
     Route: 048
     Dates: start: 20090910, end: 20090917
  12. LOXONIN [Concomitant]
     Dosage: 1 DF
     Route: 048
     Dates: start: 20090910, end: 20090917
  13. MUCOSTA [Concomitant]
     Dosage: 1 DF
     Route: 048
     Dates: start: 20090910, end: 20090917
  14. ISODINE [Concomitant]
     Dosage: 2 DF
     Route: 048
     Dates: start: 20090910, end: 20090917

REACTIONS (7)
  - BLOOD GLUCOSE INCREASED [None]
  - BLOOD TRIGLYCERIDES INCREASED [None]
  - BLOOD URIC ACID INCREASED [None]
  - FACIAL PALSY [None]
  - GLYCOSYLATED HAEMOGLOBIN INCREASED [None]
  - PROTEIN URINE PRESENT [None]
  - UPPER RESPIRATORY TRACT INFLAMMATION [None]
